FAERS Safety Report 14550845 (Version 9)
Quarter: 2018Q4

REPORT INFORMATION
  Report Type: Spontaneous
  Country: US (occurrence: US)
  Receive Date: 20180220
  Receipt Date: 20181216
  Transmission Date: 20190204
  Serious: Yes (Other)
  Sender: FDA-Public Use
  Company Number: US-BRISTOL-MYERS SQUIBB COMPANY-BMS-2018-015735

PATIENT
  Sex: Female
  Weight: 158.73 kg

DRUGS (1)
  1. ORENCIA [Suspect]
     Active Substance: ABATACEPT
     Indication: RHEUMATOID ARTHRITIS
     Dosage: 1000 MG, Q4WK
     Route: 042
     Dates: start: 201703

REACTIONS (11)
  - Tuberculosis [Unknown]
  - Swelling [Unknown]
  - Injection site erythema [Unknown]
  - Malaise [Unknown]
  - Injection site reaction [Unknown]
  - Rhinorrhoea [Unknown]
  - Sneezing [Unknown]
  - Upper respiratory tract infection [Unknown]
  - Bronchitis [Unknown]
  - Pain [Unknown]
  - Amnesia [Unknown]
